FAERS Safety Report 14691084 (Version 1)
Quarter: 2018Q1

REPORT INFORMATION
  Report Type: Spontaneous
  Country: CA (occurrence: CA)
  Receive Date: 20180328
  Receipt Date: 20180328
  Transmission Date: 20180509
  Serious: Yes (Life-Threatening, Other)
  Sender: FDA-Public Use
  Company Number: PHHY2018CA054772

PATIENT

DRUGS (17)
  1. CLINDAMYCIN. [Suspect]
     Active Substance: CLINDAMYCIN
     Indication: HIDRADENITIS
     Route: 065
  2. DOXYCYCLINE. [Suspect]
     Active Substance: DOXYCYCLINE
     Indication: HIDRADENITIS
     Route: 065
  3. AMOXICILLIN AND CLAVULANATE POTASSIUM [Suspect]
     Active Substance: AMOXICILLIN\CLAVULANATE POTASSIUM
     Indication: HIDRADENITIS
     Route: 065
  4. MINOCYCLINE [Suspect]
     Active Substance: MINOCYCLINE\MINOCYCLINE HYDROCHLORIDE
     Indication: HIDRADENITIS
     Route: 065
  5. CLINDAMYCIN. [Suspect]
     Active Substance: CLINDAMYCIN
     Dosage: UNK
     Route: 061
  6. ZINC. [Suspect]
     Active Substance: ZINC
     Indication: HIDRADENITIS
     Route: 065
  7. METRONIDAZOLE. [Suspect]
     Active Substance: METRONIDAZOLE
     Dosage: UNK
     Route: 061
  8. MOXIFLOXACIN. [Suspect]
     Active Substance: MOXIFLOXACIN
     Indication: HIDRADENITIS
     Route: 065
  9. TRIAMCINOLONE ACETONIDE. [Suspect]
     Active Substance: TRIAMCINOLONE ACETONIDE
     Indication: HIDRADENITIS
     Route: 026
  10. METRONIDAZOLE. [Suspect]
     Active Substance: METRONIDAZOLE
     Indication: HIDRADENITIS
     Route: 065
  11. DAPSONE. [Suspect]
     Active Substance: DAPSONE
     Indication: HIDRADENITIS
     Route: 061
  12. ISOTRETINOIN. [Suspect]
     Active Substance: ISOTRETINOIN
     Indication: HIDRADENITIS
     Route: 065
  13. PREDNISONE. [Suspect]
     Active Substance: PREDNISONE
     Indication: HIDRADENITIS
     Route: 065
  14. TETRACYCLINE [Suspect]
     Active Substance: TETRACYCLINE
     Indication: HIDRADENITIS
     Route: 065
  15. DAPSONE. [Suspect]
     Active Substance: DAPSONE
     Dosage: UNK
     Route: 065
  16. RIFAMPICIN [Suspect]
     Active Substance: RIFAMPIN
     Indication: HIDRADENITIS
     Route: 065
  17. ERTAPENEM. [Suspect]
     Active Substance: ERTAPENEM SODIUM
     Indication: HIDRADENITIS
     Route: 042

REACTIONS (12)
  - Suicidal ideation [Unknown]
  - Skin odour abnormal [Unknown]
  - Hidradenitis [Unknown]
  - Scar [Unknown]
  - Drug ineffective [Unknown]
  - Wound secretion [Unknown]
  - Pain [Unknown]
  - Condition aggravated [Unknown]
  - Mobility decreased [Unknown]
  - Skin lesion [Unknown]
  - Drug intolerance [Unknown]
  - Treatment failure [Unknown]
